FAERS Safety Report 4461619-5 (Version None)
Quarter: 2004Q3

REPORT INFORMATION
  Report Type: 
  Country: None (occurrence: None)
  Receive Date: 20040923
  Receipt Date: 20040913
  Transmission Date: 20050211
  Serious: Yes (Disabling)
  Sender: FDA-Public Use
  Company Number: 2004-120299-NL

PATIENT
  Age: 26 Year
  Sex: Female

DRUGS (5)
  1. MIRTAZAPINE [Suspect]
     Indication: DEPRESSION
     Dosage: 15 MG QD  ORAL
     Route: 048
     Dates: start: 20040806, end: 20040820
  2. OLMESARTAN MEDOXOMIL [Concomitant]
  3. BENDROFLUAZIDE [Concomitant]
  4. PROCHLORPERAZINE [Concomitant]
  5. PROPRANOLOL [Concomitant]

REACTIONS (1)
  - FACIAL PALSY [None]
